FAERS Safety Report 10978665 (Version 5)
Quarter: 2020Q4

REPORT INFORMATION
  Report Type: Report from Study
  Country: US (occurrence: US)
  Receive Date: 20150402
  Receipt Date: 20201117
  Transmission Date: 20210113
  Serious: Yes (Other)
  Sender: FDA-Public Use
  Company Number: US-SA-2015SA033715

PATIENT
  Age: 54 Year
  Sex: Female

DRUGS (2)
  1. TERIFLUNOMIDE. [Suspect]
     Active Substance: TERIFLUNOMIDE
     Dosage: 14 MG,QD
     Route: 048
     Dates: start: 20150311
  2. TERIFLUNOMIDE. [Suspect]
     Active Substance: TERIFLUNOMIDE
     Indication: MULTIPLE SCLEROSIS
     Dosage: 14 MG,QD
     Route: 048
     Dates: start: 2013

REACTIONS (12)
  - Seizure [Recovered/Resolved]
  - Pruritus [Unknown]
  - Limb discomfort [Unknown]
  - Pain in extremity [Unknown]
  - Alopecia [Unknown]
  - Syncope [Recovered/Resolved]
  - Acne [Unknown]
  - Urinary incontinence [Recovered/Resolved]
  - Visual impairment [Unknown]
  - Dizziness [Recovered/Resolved]
  - Feeling abnormal [Recovered/Resolved]
  - Hypoaesthesia [Unknown]

NARRATIVE: CASE EVENT DATE: 201503
